FAERS Safety Report 10314336 (Version 2)
Quarter: 2019Q2

REPORT INFORMATION
  Report Type: Spontaneous
  Country: GR (occurrence: GR)
  Receive Date: 20140718
  Receipt Date: 20190510
  Transmission Date: 20190711
  Serious: Yes (Congenital Anomaly, Other)
  Sender: FDA-Public Use
  Company Number: GR-GLAXOSMITHKLINE-B1015076A

PATIENT
  Sex: Female
  Weight: 1.91 kg

DRUGS (7)
  1. METHYLPREDNISOLONE. [Suspect]
     Active Substance: METHYLPREDNISOLONE
     Indication: GRANULOMATOSIS WITH POLYANGIITIS
     Dosage: 4 MG, BID
     Route: 064
  2. AZATHIOPRINE. [Suspect]
     Active Substance: AZATHIOPRINE
     Indication: GRANULOMATOSIS WITH POLYANGIITIS
     Dosage: 125 MG, 1D
     Route: 064
  3. NADROPARIN CALCIUM [Suspect]
     Active Substance: NADROPARIN CALCIUM
     Indication: GRANULOMATOSIS WITH POLYANGIITIS
     Dosage: 0.3 ML, UNK
     Route: 064
  4. METHYLPREDNISOLONE. [Suspect]
     Active Substance: METHYLPREDNISOLONE
     Dosage: 8 UNK, UNK
  5. BETAMETHASONE. [Suspect]
     Active Substance: BETAMETHASONE
     Indication: GRANULOMATOSIS WITH POLYANGIITIS
     Dosage: 2 DOSES OF 12MG
     Route: 064
  6. FLUTICASONE PROPIONATE (INHALED) [Suspect]
     Active Substance: FLUTICASONE PROPIONATE
     Indication: GRANULOMATOSIS WITH POLYANGIITIS
     Dosage: 250 UG, BID
     Route: 064
  7. SALBUTAMOL [Suspect]
     Active Substance: ALBUTEROL
     Indication: GRANULOMATOSIS WITH POLYANGIITIS
     Dosage: 200 UNK, TID
     Route: 064

REACTIONS (3)
  - Amniotic fluid index abnormal [Unknown]
  - Foetal exposure during pregnancy [Unknown]
  - Foetal growth restriction [Unknown]
